FAERS Safety Report 9569392 (Version 1)
Quarter: 2013Q3

REPORT INFORMATION
  Report Type: Spontaneous
  Country: US (occurrence: US)
  Receive Date: 20130930
  Receipt Date: 20130930
  Transmission Date: 20140515
  Serious: No
  Sender: FDA-Public Use
  Company Number: US-AMGEN-USASP2013058205

PATIENT
  Age: 62 Year
  Sex: Female
  Weight: 107.3 kg

DRUGS (9)
  1. ENBREL [Suspect]
     Indication: PRODUCT USED FOR UNKNOWN INDICATION
     Dosage: 50 MG (1ML), EVERY WEEK
     Route: 058
  2. EXFORGE [Concomitant]
     Dosage: 10-320 MG, UNK
  3. PRAVASTATIN [Concomitant]
     Dosage: 20 MG, UNK
  4. METFORMIN [Concomitant]
     Dosage: 750 MG ER, UNK
  5. LEVOTHYROXIN [Concomitant]
     Dosage: 300 MUG, UNK
  6. BYSTOLIC [Concomitant]
     Dosage: 10 MG, UNK
  7. MOBIC [Concomitant]
     Dosage: 15 MG, UNK
  8. CALCIUM [Concomitant]
     Dosage: UNK, CALCIUM 500
  9. VITAMIN D                          /00107901/ [Concomitant]
     Dosage: VITAMIN D CHW, 400 UNIT, UNK

REACTIONS (1)
  - Injection site pain [Unknown]
